FAERS Safety Report 8167576-2 (Version None)
Quarter: 2012Q1

REPORT INFORMATION
  Report Type: 
  Country: None (occurrence: None)
  Receive Date: 20120227
  Receipt Date: 20120222
  Transmission Date: 20120608
  Serious: Yes (Life-Threatening)
  Sender: FDA-Public Use
  Company Number: FR-ROCHE-1032674

PATIENT
  Sex: Female

DRUGS (6)
  1. XELODA [Suspect]
     Indication: BREAST CANCER
     Route: 048
     Dates: start: 20110906, end: 20110919
  2. CYCLOPHOSPHAMIDE [Concomitant]
     Indication: BREAST CANCER
     Route: 042
     Dates: start: 20080101, end: 20110801
  3. EPIRUBICIN [Suspect]
     Indication: BREAST CANCER
     Route: 042
  4. DOBUTAMINE HCL [Concomitant]
  5. CARVEDILOL [Concomitant]
  6. DOXORUBICIN HCL [Suspect]
     Indication: BREAST CANCER
     Route: 042
     Dates: start: 20110601, end: 20110801

REACTIONS (5)
  - RESPIRATORY DISTRESS [None]
  - CARDIAC FAILURE [None]
  - ACUTE PULMONARY OEDEMA [None]
  - TACHYCARDIA [None]
  - HYPOTENSION [None]
